FAERS Safety Report 20123675 (Version 2)
Quarter: 2021Q4

REPORT INFORMATION
  Report Type: Spontaneous
  Country: DE (occurrence: DE)
  Receive Date: 20211129
  Receipt Date: 20211213
  Transmission Date: 20220303
  Serious: Yes (Death, Other)
  Sender: FDA-Public Use
  Company Number: DE-BoehringerIngelheim-2021-BI-140389

PATIENT
  Age: 71 Year
  Sex: Female
  Weight: 90 kg

DRUGS (1)
  1. JARDIANCE [Suspect]
     Active Substance: EMPAGLIFLOZIN
     Indication: Type 2 diabetes mellitus
     Dates: start: 20210923, end: 20211123

REACTIONS (2)
  - Cardiomyopathy [Fatal]
  - Fournier^s gangrene [Unknown]

NARRATIVE: CASE EVENT DATE: 20211122
